FAERS Safety Report 9772110 (Version 2)
Quarter: 2013Q4

REPORT INFORMATION
  Report Type: Spontaneous
  Country: FR (occurrence: FR)
  Receive Date: 20131219
  Receipt Date: 20131219
  Transmission Date: 20140711
  Serious: Yes (Death)
  Sender: FDA-Public Use
  Company Number: FR-BAYER-2013-149561

PATIENT
  Age: 70 Year
  Sex: Male

DRUGS (3)
  1. NEXAVAR [Suspect]
     Indication: HEPATOCELLULAR CARCINOMA
     Dosage: 400 MG, BID
     Route: 048
     Dates: start: 20131017, end: 20131024
  2. PARACETAMOL [Suspect]
     Dosage: 3 G, QD
     Route: 048
     Dates: start: 20131021, end: 20131023
  3. LAMALINE [Suspect]
     Dosage: UNK
     Route: 048
     Dates: start: 20131023, end: 20131024

REACTIONS (14)
  - Acute hepatic failure [Fatal]
  - Pancreatitis acute [Fatal]
  - Palpitations [None]
  - Cough [None]
  - Tachypnoea [None]
  - Metabolic acidosis [None]
  - Somnolence [None]
  - Blood glucose decreased [None]
  - Renal failure [None]
  - Liver injury [None]
  - Aspiration [None]
  - Respiratory distress [None]
  - Hepatic vein thrombosis [None]
  - Drug effect decreased [None]
